FAERS Safety Report 5621372-6 (Version None)
Quarter: 2008Q1

REPORT INFORMATION
  Report Type: 
  Country: None (occurrence: None)
  Receive Date: 20080129
  Receipt Date: 20080121
  Transmission Date: 20080703
  Serious: Yes (Hospitalization)
  Sender: FDA-Public Use
  Company Number: 2008001966

PATIENT
  Age: 2 Month
  Weight: 4.1 kg

DRUGS (1)
  1. BENADRYL [Suspect]
     Indication: CRYING
     Dosage: ORAL
     Route: 048
     Dates: start: 20071203, end: 20080118

REACTIONS (2)
  - ACCIDENTAL OVERDOSE [None]
  - INTENTIONAL DRUG MISUSE [None]
